FAERS Safety Report 9993842 (Version 2)
Quarter: 2014Q1

REPORT INFORMATION
  Report Type: Spontaneous
  Country: US (occurrence: US)
  Receive Date: 20140310
  Receipt Date: 20140310
  Transmission Date: 20141002
  Serious: No
  Sender: FDA-Public Use
  Company Number: US-AMGEN-USASP2013040744

PATIENT
  Age: 3 Decade
  Sex: Male
  Weight: 80.5 kg

DRUGS (13)
  1. SENSIPAR [Suspect]
     Indication: HYPERPARATHYROIDISM SECONDARY
     Dosage: 30 MG, QWK
     Route: 048
     Dates: start: 20130408, end: 20130610
  2. SENSIPAR [Suspect]
  3. HYDROCORTISONE [Concomitant]
     Dosage: 25 MG, UNK
  4. KEPPRA [Concomitant]
     Dosage: 500 MG, Q12H
  5. PERCOCET                           /00446701/ [Concomitant]
     Dosage: UNK
  6. ZOCOR [Concomitant]
     Dosage: 80 UNK, Q12H
  7. INSULIN [Concomitant]
     Dosage: UNK
  8. NORVASC [Concomitant]
     Dosage: 10 MG, Q12H
  9. NEPHROVITE [Concomitant]
     Dosage: UNK UNK, Q12H
  10. LASIX                              /00032601/ [Concomitant]
     Dosage: 40 MG, Q12H
  11. FOLATE [Concomitant]
     Dosage: 1 MG, Q12H
  12. METOPROLOL [Concomitant]
     Dosage: 100 MG, Q12H
  13. FLEXERIL                           /00428402/ [Concomitant]
     Dosage: 5 MG, Q12H

REACTIONS (1)
  - Chromaturia [Recovered/Resolved]
